FAERS Safety Report 10165960 (Version 1)
Quarter: 2014Q2

REPORT INFORMATION
  Report Type: Spontaneous
  Country: US (occurrence: US)
  Receive Date: 20140511
  Receipt Date: 20140511
  Transmission Date: 20141212
  Serious: No
  Sender: FDA-Public Use
  Company Number: US-HORIZON-DUE-0014-2014

PATIENT
  Age: 40 Year
  Sex: Male

DRUGS (1)
  1. DUEXIS [Suspect]
     Indication: NECK PAIN
     Dosage: ONE TABLET IN THE MORNING
     Route: 048
     Dates: start: 20140211, end: 20140211

REACTIONS (3)
  - Palpitations [Recovered/Resolved]
  - Tachycardia [Recovered/Resolved]
  - Tremor [Recovered/Resolved]
